FAERS Safety Report 9507561 (Version 1)
Quarter: 2013Q3

REPORT INFORMATION
  Report Type: Spontaneous
  Country: US (occurrence: None)
  Receive Date: 20130906
  Receipt Date: 20130906
  Transmission Date: 20140515
  Serious: Yes (Disabling, Other)
  Sender: FDA-Public Use
  Company Number: None

PATIENT
  Age: 37 Year
  Sex: Male
  Weight: 122.47 kg

DRUGS (1)
  1. TRAMADOL [Suspect]
     Indication: BACK PAIN
     Dosage: 1 TAB  ONCE DAILY  TAKEN BY MOUTH
     Route: 048
     Dates: start: 20130903, end: 20130905

REACTIONS (2)
  - Headache [None]
  - Product formulation issue [None]
